FAERS Safety Report 6409861-8 (Version None)
Quarter: 2009Q4

REPORT INFORMATION
  Report Type: 
  Country: None (occurrence: None)
  Receive Date: 20091021
  Receipt Date: 20091021
  Transmission Date: 20100525
  Serious: Yes (Life-Threatening)
  Sender: FDA-Public Use
  Company Number: None

PATIENT
  Age: 43 Year
  Sex: Male

DRUGS (1)
  1. SODIUM HYDROGEN CARBONATE [Suspect]
     Indication: METABOLIC ACIDOSIS
     Dosage: 45 MEQ/H, UNKNOWN, INTRAVENOUS DRIP
     Route: 041

REACTIONS (4)
  - CONGESTIVE CARDIOMYOPATHY [None]
  - HAEMODYNAMIC INSTABILITY [None]
  - HYPOKALAEMIA [None]
  - VENTRICULAR TACHYCARDIA [None]
